FAERS Safety Report 5106313-2 (Version None)
Quarter: 2006Q3

REPORT INFORMATION
  Report Type: 
  Country: None (occurrence: None)
  Receive Date: 20060912
  Receipt Date: 20060830
  Transmission Date: 20061208
  Serious: Yes (Other)
  Sender: FDA-Public Use
  Company Number: 2006106245

PATIENT
  Sex: Male

DRUGS (1)
  1. NORVASC [Suspect]
     Indication: HYPERTENSION
     Dosage: ORAL
     Route: 048

REACTIONS (7)
  - DIZZINESS [None]
  - INSOMNIA [None]
  - NERVOUSNESS [None]
  - POLLAKIURIA [None]
  - RETINAL DISORDER [None]
  - SYNCOPE [None]
  - TINNITUS [None]
